FAERS Safety Report 6883588-0 (Version None)
Quarter: 2010Q3

REPORT INFORMATION
  Report Type: 
  Country: None (occurrence: None)
  Receive Date: 20100729
  Receipt Date: 20091117
  Transmission Date: 20110219
  Serious: Yes (Other)
  Sender: FDA-Public Use
  Company Number: CO-PFIZER INC-2010088463

PATIENT
  Age: 87 Year
  Sex: Female

DRUGS (4)
  1. LIPITOR [Suspect]
     Dosage: 40 MG, 1X/DAY
     Route: 048
     Dates: start: 20091030
  2. LEVOTHYROXINE [Concomitant]
     Indication: THYROID DISORDER
     Dosage: 50 MG, UNK
     Dates: start: 19900101
  3. MACRODANTINA [Concomitant]
     Indication: INFECTION
     Dosage: 50 MG, UNK
     Dates: start: 19970101
  4. TROSYD [Concomitant]
     Indication: THYROID DISORDER
     Dosage: 50 MG, 1X/DAY
     Dates: start: 19990101

REACTIONS (3)
  - TENDONITIS [None]
  - URETHRAL DISORDER [None]
  - UTERINE OPERATION [None]
